FAERS Safety Report 9435330 (Version 1)
Quarter: 2013Q3

REPORT INFORMATION
  Report Type: Spontaneous
  Country: US (occurrence: US)
  Receive Date: 20130801
  Receipt Date: 20130801
  Transmission Date: 20140515
  Serious: Yes (Hospitalization)
  Sender: FDA-Public Use
  Company Number: US-GLAXOSMITHKLINE-A0798136A

PATIENT
  Age: 50 Year
  Sex: Male
  Weight: 115.9 kg

DRUGS (1)
  1. AVANDIA [Suspect]
     Indication: DIABETES MELLITUS
     Route: 048

REACTIONS (3)
  - Cardiac failure congestive [Unknown]
  - Angina pectoris [Unknown]
  - Ischaemic cardiomyopathy [Unknown]
